FAERS Safety Report 20391551 (Version 1)
Quarter: 2022Q1

REPORT INFORMATION
  Report Type: Report from Study
  Country: ES (occurrence: ES)
  Receive Date: 20220128
  Receipt Date: 20220128
  Transmission Date: 20220424
  Serious: Yes (Hospitalization, Disabling)
  Sender: FDA-Public Use
  Company Number: ES-ABBVIE-22K-144-4245253-00

PATIENT
  Age: 58 Year
  Sex: Male
  Weight: 75 kg

DRUGS (3)
  1. HUMIRA [Suspect]
     Active Substance: ADALIMUMAB
     Indication: Colitis ulcerative
     Route: 058
     Dates: start: 20140930
  2. AZATHIOPRINE [Suspect]
     Active Substance: AZATHIOPRINE
     Indication: Colitis ulcerative
     Route: 048
     Dates: start: 20020715
  3. INTESTIFALK [Concomitant]
     Indication: Colitis ulcerative
     Route: 054
     Dates: start: 20140930

REACTIONS (1)
  - Bone demineralisation [Recovered/Resolved]

NARRATIVE: CASE EVENT DATE: 20170202
